FAERS Safety Report 4339621-3 (Version None)
Quarter: 2004Q2

REPORT INFORMATION
  Report Type: 
  Country: None (occurrence: None)
  Receive Date: 20040415
  Receipt Date: 20040406
  Transmission Date: 20050107
  Serious: Yes (Hospitalization)
  Sender: FDA-Public Use
  Company Number: JP-MERCK-0404USA00997

PATIENT
  Age: 35 Year
  Sex: Male
  Weight: 40 kg

DRUGS (6)
  1. ACEMETACIN [Concomitant]
     Indication: NEPHROGENIC DIABETES INSIPIDUS
     Route: 065
  2. AMILORIDE [Concomitant]
     Indication: NEPHROGENIC DIABETES INSIPIDUS
     Route: 065
  3. AMILORIDE [Concomitant]
     Route: 065
  4. HYDRODIURIL [Suspect]
     Indication: NEPHROGENIC DIABETES INSIPIDUS
     Route: 048
  5. INDOMETHACIN [Concomitant]
     Indication: NEPHROGENIC DIABETES INSIPIDUS
     Route: 065
  6. TRIAMTERENE [Concomitant]
     Indication: NEPHROGENIC DIABETES INSIPIDUS
     Route: 065

REACTIONS (4)
  - ALKALOSIS HYPOCHLORAEMIC [None]
  - HYPOKALAEMIA [None]
  - METABOLIC ALKALOSIS [None]
  - SUBILEUS [None]
